FAERS Safety Report 4427890-0 (Version None)
Quarter: 2004Q3

REPORT INFORMATION
  Report Type: 
  Country: None (occurrence: None)
  Receive Date: 20040813
  Receipt Date: 20040805
  Transmission Date: 20050211
  Serious: Yes (Hospitalization)
  Sender: FDA-Public Use
  Company Number: TPA2004A00688

PATIENT
  Age: 46 Year
  Sex: Female
  Weight: 115.2136 kg

DRUGS (17)
  1. ACTOS [Suspect]
     Indication: DIABETES MELLITUS NON-INSULIN-DEPENDENT
     Dosage: SEE IMAGE
     Route: 048
     Dates: start: 20040213, end: 20040331
  2. ACTOS [Suspect]
     Indication: DIABETES MELLITUS NON-INSULIN-DEPENDENT
     Dosage: SEE IMAGE
     Route: 048
     Dates: start: 20040331
  3. LOVASTATIN [Suspect]
     Dosage: 20 MG, 1 IN 1 D,
     Dates: end: 20040412
  4. METFORMIN HCL [Concomitant]
  5. GLYBURIDE [Concomitant]
  6. LISINOPRIL [Concomitant]
  7. PLAVIX [Concomitant]
  8. ASPIRIN [Concomitant]
  9. MULTIPLE VITAMIN (MULTIPLE VITAMINS) [Concomitant]
  10. B COMPLEX ELX [Concomitant]
  11. VITAMIN E [Concomitant]
  12. VITAMIN C (ASCORBIC ACID) [Concomitant]
  13. OMEGA-3 (FISH OIL) [Concomitant]
  14. DILTIAZEM [Concomitant]
  15. ISOSORBIDE (ISOSORBIDE) [Concomitant]
  16. GEMFIBROZIL [Concomitant]
  17. ATENOLOL [Concomitant]

REACTIONS (12)
  - ANEURYSM [None]
  - ARTERIAL OCCLUSIVE DISEASE [None]
  - DIABETIC RETINOPATHY [None]
  - EYE HAEMORRHAGE [None]
  - FATIGUE [None]
  - MUSCULAR WEAKNESS [None]
  - OPTIC ATROPHY [None]
  - PAIN [None]
  - RETINAL VASCULAR DISORDER [None]
  - SENSITIVITY OF TEETH [None]
  - TOOTHACHE [None]
  - VITREOUS HAEMORRHAGE [None]
